FAERS Safety Report 12720676 (Version 2)
Quarter: 2016Q3

REPORT INFORMATION
  Report Type: Spontaneous
  Country: DE (occurrence: JP)
  Receive Date: 20160907
  Receipt Date: 20160912
  Transmission Date: 20161109
  Serious: No
  Sender: FDA-Public Use
  Company Number: JP-FRI-1000087285

PATIENT
  Age: 7 Decade
  Sex: Male

DRUGS (11)
  1. MEMANTINE. [Suspect]
     Active Substance: MEMANTINE
     Dosage: 10 MG
     Route: 048
  2. MEMANTINE. [Suspect]
     Active Substance: MEMANTINE
     Dosage: 20 MG
     Route: 048
  3. AMLODIPINE [Concomitant]
     Active Substance: AMLODIPINE BESYLATE
  4. URSO [Concomitant]
     Active Substance: URSODIOL
  5. MEMANTINE. [Suspect]
     Active Substance: MEMANTINE
     Dosage: 20 MG
     Route: 048
  6. MEMANTINE. [Suspect]
     Active Substance: MEMANTINE
     Dosage: UNK MG
     Route: 048
  7. CONTOMIN [Concomitant]
     Active Substance: CHLORPROMAZINE
  8. MEMANTINE. [Suspect]
     Active Substance: MEMANTINE
     Indication: DEMENTIA ALZHEIMER^S TYPE
     Dosage: 20 MG
     Route: 048
  9. MEMANTINE. [Suspect]
     Active Substance: MEMANTINE
     Dosage: 0 MG
     Route: 048
  10. REMINYL [Concomitant]
     Active Substance: GALANTAMINE
  11. ZOLPIDEM [Concomitant]
     Active Substance: ZOLPIDEM\ZOLPIDEM TARTRATE

REACTIONS (2)
  - Skin disorder [Unknown]
  - Liver disorder [Recovering/Resolving]
